FAERS Safety Report 7279469-3 (Version None)
Quarter: 2011Q1

REPORT INFORMATION
  Report Type: 
  Country: None (occurrence: None)
  Receive Date: 20110208
  Receipt Date: 20110126
  Transmission Date: 20110831
  Serious: No
  Sender: FDA-Public Use
  Company Number: US-BIOGENIDEC-2010BI021814

PATIENT
  Sex: Male

DRUGS (1)
  1. TYSABRI [Suspect]
     Indication: MULTIPLE SCLEROSIS
     Route: 042
     Dates: start: 20091119, end: 20100830

REACTIONS (7)
  - ATAXIA [None]
  - CONTUSION [None]
  - TREMOR [None]
  - MUSCLE SPASTICITY [None]
  - ASTHENIA [None]
  - FALL [None]
  - GAIT DISTURBANCE [None]
